FAERS Safety Report 8357744-9 (Version None)
Quarter: 2012Q2

REPORT INFORMATION
  Report Type: 
  Country: None (occurrence: None)
  Receive Date: 20120514
  Receipt Date: 20120430
  Transmission Date: 20120825
  Serious: Yes (Other)
  Sender: FDA-Public Use
  Company Number: CA-ROCHE-GNE305211

PATIENT
  Sex: Male

DRUGS (2)
  1. XOLAIR [Suspect]
     Indication: ASTHMA
     Dosage: 375 MG, Q2W
     Route: 058
     Dates: start: 20051128
  2. SPIRIVA [Concomitant]

REACTIONS (4)
  - ACCIDENT [None]
  - UPPER LIMB FRACTURE [None]
  - DYSPNOEA [None]
  - MUSCULOSKELETAL CHEST PAIN [None]
